FAERS Safety Report 4932642-9 (Version None)
Quarter: 2006Q1

REPORT INFORMATION
  Report Type: 
  Country: None (occurrence: None)
  Receive Date: 20060301
  Receipt Date: 20060215
  Transmission Date: 20060701
  Serious: Yes (Hospitalization)
  Sender: FDA-Public Use
  Company Number: CERZ-10592

PATIENT
  Age: 26 Month
  Sex: Female
  Weight: 7 kg

DRUGS (9)
  1. CEREZYME [Suspect]
     Indication: GAUCHER'S DISEASE
     Dosage: 1200 UNITS Q2WKS IV
     Route: 042
     Dates: start: 20050930
  2. CEREZYME [Suspect]
  3. CEREZYME [Suspect]
  4. CEREZYME [Suspect]
     Indication: GAUCHER'S DISEASE
     Dosage: 1000 UNITS Q2WKS IV
     Route: 042
     Dates: start: 20040908, end: 20050915
  5. CEREZYME [Suspect]
     Indication: GAUCHER'S DISEASE
     Dosage: 800 UNITS Q2WKS IV
     Route: 042
     Dates: start: 20030813, end: 20040824
  6. CLOBAZAM [Concomitant]
  7. AMBROXOL HYDROCHLORIDE [Concomitant]
  8. CARBOCYSTEINE [Concomitant]
  9. TPN [Concomitant]

REACTIONS (7)
  - BRONCHITIS ACUTE [None]
  - EPILEPSY [None]
  - GASTROINTESTINAL HAEMORRHAGE [None]
  - HYPERTONIA [None]
  - OPISTHOTONUS [None]
  - PNEUMONIA [None]
  - RESPIRATORY FAILURE [None]
